FAERS Safety Report 21413559 (Version 1)
Quarter: 2022Q4

REPORT INFORMATION
  Report Type: Spontaneous
  Country: CA (occurrence: CA)
  Receive Date: 20221006
  Receipt Date: 20221006
  Transmission Date: 20230112
  Serious: Yes (Life-Threatening, Hospitalization)
  Sender: FDA-Public Use
  Company Number: CA-TEVA-2022-CA-2078426

PATIENT
  Age: 55 Year
  Sex: Female
  Weight: 128 kg

DRUGS (4)
  1. MEDROXYPROGESTERONE [Suspect]
     Active Substance: MEDROXYPROGESTERONE
     Indication: Endometrial cancer stage 0
     Dosage: 10 MILLIGRAM DAILY; THERAPY DURATION : 54.0 DAYS
     Route: 048
  2. AMLODIPINE [Concomitant]
     Active Substance: AMLODIPINE BESYLATE
     Indication: Product used for unknown indication
     Route: 065
  3. PERINDOPRIL [Concomitant]
     Active Substance: PERINDOPRIL
     Indication: Product used for unknown indication
  4. RIZATRIPTAN [Concomitant]
     Active Substance: RIZATRIPTAN
     Indication: Product used for unknown indication

REACTIONS (2)
  - Deep vein thrombosis [Recovered/Resolved]
  - Pulmonary embolism [Recovered/Resolved]
